FAERS Safety Report 6488694-0 (Version None)
Quarter: 2009Q4

REPORT INFORMATION
  Report Type: 
  Country: None (occurrence: None)
  Receive Date: 20091210
  Receipt Date: 20090911
  Transmission Date: 20100525
  Serious: No
  Sender: FDA-Public Use
  Company Number: US-AMGEN-KDL364239

PATIENT
  Sex: Male

DRUGS (5)
  1. ENBREL [Suspect]
     Indication: RHEUMATOID ARTHRITIS
     Route: 058
     Dates: start: 20090507
  2. PLAVIX [Suspect]
  3. ASPIRIN [Suspect]
  4. PREDNISONE [Suspect]
  5. SULFASALAZINE [Concomitant]
     Route: 048

REACTIONS (3)
  - CONTUSION [None]
  - HAEMORRHAGE [None]
  - LOCAL SWELLING [None]
